FAERS Safety Report 15258103 (Version 2)
Quarter: 2019Q2

REPORT INFORMATION
  Report Type: Spontaneous
  Country: US (occurrence: US)
  Receive Date: 20180809
  Receipt Date: 20190404
  Transmission Date: 20190711
  Serious: Yes (Other)
  Sender: FDA-Public Use
  Company Number: US-SUN PHARMACEUTICAL INDUSTRIES LTD-2018US-180776

PATIENT
  Age: 59 Year
  Sex: Female

DRUGS (2)
  1. LOPERAMIDE [Suspect]
     Active Substance: LOPERAMIDE
     Indication: DIARRHOEA
     Dosage: 5 DF, TID
     Route: 048
  2. LOPERAMIDE [Suspect]
     Active Substance: LOPERAMIDE
     Dosage: 15 DF, TID
     Route: 048

REACTIONS (4)
  - Withdrawal syndrome [Unknown]
  - Drug level above therapeutic [Unknown]
  - Hyperhidrosis [Unknown]
  - Electrocardiogram QT prolonged [Recovered/Resolved]
